FAERS Safety Report 4742076-8 (Version None)
Quarter: 2005Q3

REPORT INFORMATION
  Report Type: 
  Country: None (occurrence: None)
  Receive Date: 20050810
  Receipt Date: 20050810
  Transmission Date: 20060218
  Serious: Yes (Life-Threatening, Hospitalization)
  Sender: FDA-Public Use
  Company Number: None

PATIENT
  Age: 74 Year
  Sex: Male
  Weight: 137.6 kg

DRUGS (8)
  1. WARFARIN [Suspect]
  2. OXAPROZIN [Suspect]
  3. LOVASTATIN [Concomitant]
  4. POTASSIUM CL [Concomitant]
  5. ALLOPURINOL [Concomitant]
  6. VIT K [Concomitant]
  7. ATENOLOL [Concomitant]
  8. HYDROCHLOROTHIAZIDE [Concomitant]

REACTIONS (2)
  - HAEMORRHAGE INTRACRANIAL [None]
  - MENTAL STATUS CHANGES [None]
